FAERS Safety Report 23342971 (Version 1)
Quarter: 2023Q4

REPORT INFORMATION
  Report Type: Spontaneous
  Country: US (occurrence: US)
  Receive Date: 20231227
  Receipt Date: 20231227
  Transmission Date: 20240110
  Serious: No
  Sender: FDA-Public Use
  Company Number: US-Millicent Holdings Ltd.-MILL20230372

PATIENT
  Sex: Female

DRUGS (1)
  1. INTRAROSA [Suspect]
     Active Substance: PRASTERONE
     Indication: Vulvovaginal discomfort
     Dosage: UNKNOWN
     Route: 067

REACTIONS (2)
  - Contraindicated product administered [Unknown]
  - Off label use [Unknown]
